FAERS Safety Report 13260598 (Version 2)
Quarter: 2017Q1

REPORT INFORMATION
  Report Type: Spontaneous
  Country: IT (occurrence: IT)
  Receive Date: 20170222
  Receipt Date: 20170227
  Transmission Date: 20170428
  Serious: Yes (Other)
  Sender: FDA-Public Use
  Company Number: IT-JNJFOC-20170216012

PATIENT

DRUGS (2)
  1. GOLIMUMAB [Suspect]
     Active Substance: GOLIMUMAB
     Indication: COLITIS ULCERATIVE
     Dosage: 200 MG AT WEEK 0, 100 MG AT WEEK 2, THEN 50  MG OR 100 MG EVERY 4 WEEKS DEPENDING ON BODY WEIGHT
     Route: 058
     Dates: start: 201503, end: 201611
  2. GOLIMUMAB [Suspect]
     Active Substance: GOLIMUMAB
     Indication: COLITIS ULCERATIVE
     Route: 058

REACTIONS (5)
  - Skin infection [Unknown]
  - Proctocolectomy [Unknown]
  - Basal cell carcinoma [Unknown]
  - Therapeutic response decreased [Unknown]
  - Genitourinary tract infection [Unknown]
